FAERS Safety Report 4769027-4 (Version None)
Quarter: 2005Q3

REPORT INFORMATION
  Report Type: 
  Country: None (occurrence: None)
  Receive Date: 20050913
  Receipt Date: 20050831
  Transmission Date: 20060218
  Serious: Yes (Death, Other)
  Sender: FDA-Public Use
  Company Number: 2005061411

PATIENT
  Age: 61 Year
  Sex: Female
  Weight: 88 kg

DRUGS (2)
  1. CELEBREX [Suspect]
     Indication: POLYMYALGIA RHEUMATICA
     Dosage: 200 MG (200 MG, 1 IN 1 D), ORAL
     Route: 048
     Dates: start: 20041101, end: 20041201
  2. BETA BLOCKING AGENTS (BETA BLOCKING AGENTS) [Concomitant]

REACTIONS (9)
  - AORTIC ATHEROSCLEROSIS [None]
  - CARDIAC VALVE DISEASE [None]
  - CORONARY ARTERY ATHEROSCLEROSIS [None]
  - CORONARY ARTERY STENOSIS [None]
  - CORONARY ARTERY THROMBOSIS [None]
  - EMPHYSEMA [None]
  - HEPATIC STEATOSIS [None]
  - MYOCARDIAL INFARCTION [None]
  - VASCULAR CALCIFICATION [None]
